FAERS Safety Report 6421593-9 (Version None)
Quarter: 2009Q4

REPORT INFORMATION
  Report Type: 
  Country: None (occurrence: None)
  Receive Date: 20091030
  Receipt Date: 20091026
  Transmission Date: 20100525
  Serious: Yes (Death)
  Sender: FDA-Public Use
  Company Number: PHEH2009US11043

PATIENT
  Sex: Male
  Weight: 179.59 kg

DRUGS (1)
  1. EXJADE [Suspect]
     Dosage: 2000 MG DAILY
     Route: 048
     Dates: start: 20090507, end: 20090831

REACTIONS (3)
  - CEREBRAL HAEMORRHAGE [None]
  - MYELODYSPLASTIC SYNDROME [None]
  - THROMBOCYTOPENIA [None]
